FAERS Safety Report 9143676 (Version 2)
Quarter: 2013Q2

REPORT INFORMATION
  Report Type: Spontaneous
  Country: US (occurrence: US)
  Receive Date: 20130306
  Receipt Date: 20130403
  Transmission Date: 20140414
  Serious: Yes (Hospitalization, Other)
  Sender: FDA-Public Use
  Company Number: US-ROCHE-778849

PATIENT
  Age: 18 Year
  Sex: Female
  Weight: 56.7 kg

DRUGS (1)
  1. ACCUTANE [Suspect]
     Indication: ACNE
     Route: 065
     Dates: start: 199705, end: 199710

REACTIONS (9)
  - Colitis ulcerative [Unknown]
  - Depression [Unknown]
  - Inflammatory bowel disease [Unknown]
  - Intestinal fistula [Unknown]
  - Dyshidrotic eczema [Unknown]
  - Eczema [Unknown]
  - Ingrowing nail [Unknown]
  - Blood cholesterol increased [Unknown]
  - Blood triglycerides increased [Unknown]
